FAERS Safety Report 25706901 (Version 1)
Quarter: 2025Q3

REPORT INFORMATION
  Report Type: Spontaneous
  Country: AU (occurrence: AU)
  Receive Date: 20250820
  Receipt Date: 20250820
  Transmission Date: 20251020
  Serious: Yes (Other)
  Sender: IPSEN BIOPHARMACEUTICALS, INC.
  Company Number: AU-IPSEN Group, Research and Development-2025-20148

PATIENT
  Sex: Male

DRUGS (1)
  1. SOHONOS [Suspect]
     Active Substance: PALOVAROTENE
     Indication: Product used for unknown indication

REACTIONS (1)
  - Growth failure [Unknown]
